FAERS Safety Report 4920070-1 (Version None)
Quarter: 2006Q1

REPORT INFORMATION
  Report Type: 
  Country: None (occurrence: None)
  Receive Date: 20060216
  Receipt Date: 20060207
  Transmission Date: 20060701
  Serious: Yes (Other)
  Sender: FDA-Public Use
  Company Number: BR-GDP-0612725

PATIENT
  Age: 46 Year
  Sex: Female

DRUGS (4)
  1. TRI-LUMA [Suspect]
     Indication: CHLOASMA
     Dosage: 1 APP QD TP
     Route: 061
     Dates: start: 20051025, end: 20060101
  2. ASCORBIC ACID [Concomitant]
  3. VITAMIN E [Concomitant]
  4. PICNOGENOL [Concomitant]

REACTIONS (2)
  - PIGMENTATION DISORDER [None]
  - SELF ESTEEM DECREASED [None]
